FAERS Safety Report 8413185-7 (Version None)
Quarter: 2012Q2

REPORT INFORMATION
  Report Type: 
  Country: None (occurrence: None)
  Receive Date: 20120323
  Receipt Date: 20110314
  Transmission Date: 20120825
  Serious: Yes (Hospitalization, Other)
  Sender: FDA-Public Use
  Company Number: 163-21880-11022575

PATIENT
  Age: 82 Year
  Sex: Male
  Weight: 78.9 kg

DRUGS (2)
  1. REVLIMID [Suspect]
     Indication: MULTIPLE MYELOMA
     Dosage: 10 MG, DAILY FOR 21 DAYS, PO 5 MG, DAILY FOR 21 DAYS, PO
     Route: 048
     Dates: start: 20101118
  2. REVLIMID [Suspect]
     Indication: MULTIPLE MYELOMA
     Dosage: 10 MG, DAILY FOR 21 DAYS, PO 5 MG, DAILY FOR 21 DAYS, PO
     Route: 048
     Dates: start: 20110301

REACTIONS (1)
  - PNEUMONIA [None]
